FAERS Safety Report 10459665 (Version 1)
Quarter: 2014Q3

REPORT INFORMATION
  Report Type: Spontaneous
  Country: US (occurrence: None)
  Receive Date: 20140915
  Receipt Date: 20140915
  Transmission Date: 20150326
  Serious: Yes (Hospitalization, Other)
  Sender: FDA-Public Use
  Company Number: ADR-2014-01663

PATIENT
  Age: 20 Year
  Sex: Female

DRUGS (18)
  1. LIORESAL [Suspect]
     Active Substance: BACLOFEN
     Indication: MUSCLE SPASTICITY
     Dates: start: 20140709, end: 20140803
  2. FLUOXETINE [Suspect]
     Active Substance: FLUOXETINE\FLUOXETINE HYDROCHLORIDE
     Route: 048
  3. NAPROXEN. [Suspect]
     Active Substance: NAPROXEN
     Dosage: 8 MLS  PER TUBE TWICE DAILY
  4. NAPROXEN. [Suspect]
     Active Substance: NAPROXEN
     Dosage: 8 MLS PER TUBE
  5. GABLOFEN [Suspect]
     Active Substance: BACLOFEN
     Route: 037
  6. VALPROIC ACID. [Suspect]
     Active Substance: VALPROIC ACID
  7. GOLYTELY [Suspect]
     Active Substance: POLYETHYLENE GLYCOL 3350\POTASSIUM CHLORIDE\SODIUM BICARBONATE\SODIUM CHLORIDE\SODIUM SULFATE ANHYDROUS
     Dosage: PRN
  8. MIRALAX [Suspect]
     Active Substance: POLYETHYLENE GLYCOL 3350
  9. TRAZODONE [Suspect]
     Active Substance: TRAZODONE HYDROCHLORIDE
     Dosage: 100 MG ORAL PER TUBE AT BEDTIME; DECREASED TO 50 MG AT BEDTIME ON 7/14/2014
  10. GABLOFEN [Suspect]
     Active Substance: BACLOFEN
     Route: 037
     Dates: start: 20140803, end: 20140822
  11. LIORESAL [Suspect]
     Active Substance: BACLOFEN
     Indication: MUSCLE SPASTICITY
     Dates: end: 20140709
  12. MULTIVITAMIN [Suspect]
     Active Substance: VITAMINS
  13. MONTELUKAST [Suspect]
     Active Substance: MONTELUKAST SODIUM
     Dosage: 8 PM PER GT
     Route: 048
  14. TIZANIDINE [Suspect]
     Active Substance: TIZANIDINE
  15. ROBINUL [Suspect]
     Active Substance: GLYCOPYRROLATE
     Dosage: BY MOUTH
  16. CLONAZEPAM. [Suspect]
     Active Substance: CLONAZEPAM
     Route: 048
  17. RANITIDINE [Suspect]
     Active Substance: RANITIDINE\RANITIDINE HYDROCHLORIDE
     Dosage: 4 TEASPOONS PER TUBE
     Route: 048
  18. PROMETHAZINE [Suspect]
     Active Substance: PROMETHAZINE\PROMETHAZINE HYDROCHLORIDE
     Dosage: PRN

REACTIONS (35)
  - Hypotonia [None]
  - Vomiting [None]
  - Hypersomnia [None]
  - Nausea [None]
  - Leukopenia [None]
  - Blood pressure decreased [None]
  - Metabolic acidosis [None]
  - Dehydration [None]
  - Irritability [None]
  - Gastritis [None]
  - Urine amphetamine positive [None]
  - Agitation [None]
  - Malaise [None]
  - Crying [None]
  - Bradycardia [None]
  - Lethargy [None]
  - Movement disorder [None]
  - Pneumonia aspiration [None]
  - Haematemesis [None]
  - Retching [None]
  - Constipation [None]
  - Tendon disorder [None]
  - Overdose [None]
  - Headache [None]
  - Arthralgia [None]
  - Feeling cold [None]
  - Depressed level of consciousness [None]
  - Somnolence [None]
  - Normochromic normocytic anaemia [None]
  - Asthenia [None]
  - Pain [None]
  - Respiratory rate decreased [None]
  - Discomfort [None]
  - Urinary retention [None]
  - Syncope [None]
